FAERS Safety Report 19552343 (Version 1)
Quarter: 2021Q3

REPORT INFORMATION
  Report Type: Spontaneous
  Country: US (occurrence: US)
  Receive Date: 20210715
  Receipt Date: 20210715
  Transmission Date: 20211014
  Serious: No
  Sender: FDA-Public Use
  Company Number: US-SA-2021SA232506

PATIENT
  Age: 82 Year
  Sex: Female

DRUGS (12)
  1. MONTELUKAST [Concomitant]
     Active Substance: MONTELUKAST SODIUM
  2. FUROSEMIDE. [Concomitant]
     Active Substance: FUROSEMIDE
  3. PERMETHRIN. [Concomitant]
     Active Substance: PERMETHRIN
  4. DUPIXENT [Suspect]
     Active Substance: DUPILUMAB
     Dosage: 300 MG, QOW
     Route: 058
  5. TACROLIMUS. [Concomitant]
     Active Substance: TACROLIMUS
  6. DUPIXENT [Suspect]
     Active Substance: DUPILUMAB
     Indication: DERMATITIS ATOPIC
     Dosage: 600 MG, 1X
     Route: 058
  7. LOSARTAN. [Concomitant]
     Active Substance: LOSARTAN
  8. CLOBETASOL [Concomitant]
     Active Substance: CLOBETASOL
  9. POTASSIUM CHLORIDE. [Concomitant]
     Active Substance: POTASSIUM CHLORIDE
  10. DILTIAZEM. [Concomitant]
     Active Substance: DILTIAZEM
  11. FUM.FERROSO VALDEC [Concomitant]
  12. BISOPROL [Concomitant]
     Active Substance: BISOPROLOL FUMARATE

REACTIONS (1)
  - Hypersensitivity [Not Recovered/Not Resolved]
